FAERS Safety Report 5499193-7 (Version None)
Quarter: 2007Q4

REPORT INFORMATION
  Report Type: 
  Country: None (occurrence: None)
  Receive Date: 20071026
  Receipt Date: 20071016
  Transmission Date: 20080405
  Serious: Yes (Other)
  Sender: FDA-Public Use
  Company Number: US-AVENTIS-200717306US

PATIENT
  Age: 52 Year
  Sex: Male

DRUGS (3)
  1. LASIX [Suspect]
  2. LASIX [Suspect]
  3. LISINOPRIL [Suspect]

REACTIONS (6)
  - BLOOD CREATININE INCREASED [None]
  - DYSPNOEA [None]
  - HYPERKALAEMIA [None]
  - OLIGURIA [None]
  - PROTEINURIA [None]
  - RENAL FAILURE ACUTE [None]
